FAERS Safety Report 13180434 (Version 1)
Quarter: 2017Q1

REPORT INFORMATION
  Report Type: Spontaneous
  Country: MX (occurrence: MX)
  Receive Date: 20170202
  Receipt Date: 20170202
  Transmission Date: 20170428
  Serious: Yes (Death, Hospitalization, Other)
  Sender: FDA-Public Use
  Company Number: MX-SA-2017SA016914

PATIENT
  Sex: Female

DRUGS (5)
  1. ACETYLSALICYLIC ACID [Concomitant]
     Active Substance: ASPIRIN
     Indication: NERVOUS SYSTEM DISORDER
     Route: 048
     Dates: start: 201210, end: 20131128
  2. ACETYLSALICYLIC ACID [Concomitant]
     Active Substance: ASPIRIN
     Indication: NERVOUS SYSTEM DISORDER
     Dates: start: 2006, end: 2006
  3. ACETYLSALICYLIC ACID [Concomitant]
     Active Substance: ASPIRIN
     Indication: NERVOUS SYSTEM DISORDER
     Route: 048
     Dates: start: 2007, end: 201203
  4. CLOPIDOGREL BISULFATE. [Suspect]
     Active Substance: CLOPIDOGREL BISULFATE
     Indication: CEREBROVASCULAR DISORDER
     Route: 048
     Dates: start: 2006, end: 201203
  5. CLOPIDOGREL BISULFATE. [Suspect]
     Active Substance: CLOPIDOGREL BISULFATE
     Indication: CEREBROVASCULAR DISORDER
     Route: 048
     Dates: start: 2012, end: 20131128

REACTIONS (22)
  - Malnutrition [Unknown]
  - Cerebrovascular disorder [Unknown]
  - Urinary tract infection [Fatal]
  - Infection [Unknown]
  - Carotid artery disease [Unknown]
  - Electrolyte imbalance [Unknown]
  - Metabolic acidosis [Unknown]
  - Immobile [Unknown]
  - Cerebral infarction [Fatal]
  - Acid base balance abnormal [Unknown]
  - Dyspnoea [Unknown]
  - Hemiparesis [Unknown]
  - Diverticulum [Unknown]
  - Transient ischaemic attack [Unknown]
  - Neurological symptom [Unknown]
  - Septic shock [Unknown]
  - Rectal haemorrhage [Unknown]
  - Benign neoplasm [Unknown]
  - Sepsis [Fatal]
  - Infarction [Unknown]
  - Vascular fragility [Unknown]
  - Aphasia [Unknown]

NARRATIVE: CASE EVENT DATE: 2006
